FAERS Safety Report 16847379 (Version 4)
Quarter: 2019Q4

REPORT INFORMATION
  Report Type: Spontaneous
  Country: FR (occurrence: FR)
  Receive Date: 20190924
  Receipt Date: 20191122
  Transmission Date: 20200122
  Serious: Yes (Hospitalization, Other)
  Sender: FDA-Public Use
  Company Number: FR-009507513-1909FRA007615

PATIENT
  Age: 77 Year
  Sex: Female
  Weight: 53 kg

DRUGS (9)
  1. INEGY [Suspect]
     Active Substance: EZETIMIBE\SIMVASTATIN
     Indication: DYSLIPIDAEMIA
  2. COVERSYL (PERINDOPRIL ARGININE) [Concomitant]
     Active Substance: PERINDOPRIL ARGININE
     Indication: HYPERTENSION
     Dosage: 1 DOSAGE FORM, QD
     Dates: start: 201501
  3. STRESAM [Concomitant]
     Active Substance: ETIFOXINE
     Dosage: 1 DOSAGE FORM, IN THE MORNING AND EVENING OCCASIONALLY
  4. DOLIPRANE [Concomitant]
     Active Substance: ACETAMINOPHEN
     Indication: PAIN
     Dosage: 3 DOSAGE FORM, TID
     Dates: start: 20190813, end: 20190818
  5. INEGY [Suspect]
     Active Substance: EZETIMIBE\SIMVASTATIN
     Indication: HYPERCHOLESTEROLAEMIA
     Dosage: 1 TABLET, EVERY EVENING
     Route: 048
     Dates: start: 2015, end: 201908
  6. ASPIRIN PROTECT [Concomitant]
     Active Substance: ASPIRIN
     Indication: CAROTID ARTERY THROMBOSIS
     Dosage: 1 DOSAGE FORM
     Dates: start: 201501
  7. KARDEGIC [Concomitant]
     Active Substance: ASPIRIN DL-LYSINE
     Dosage: 1 DOSAGE FORM, AT NOON
  8. ADVIL [Concomitant]
     Active Substance: IBUPROFEN
     Indication: PAIN
     Dosage: 1 DOSAGE FORM, IN THE MORNING AND IN THE EVENING
     Dates: start: 20190813, end: 20190816
  9. ESOMEPRAZOLE. [Concomitant]
     Active Substance: ESOMEPRAZOLE MAGNESIUM
     Dosage: 1 DOSAGE FORM PER DAY

REACTIONS (12)
  - Myalgia [Recovering/Resolving]
  - Blood triglycerides increased [Unknown]
  - Hepatic enzyme increased [Unknown]
  - Urine abnormality [Recovering/Resolving]
  - Faeces discoloured [Recovering/Resolving]
  - Nausea [Not Recovered/Not Resolved]
  - Drug-induced liver injury [Unknown]
  - Gamma-glutamyltransferase increased [Unknown]
  - Decreased appetite [Unknown]
  - Jaundice [Recovering/Resolving]
  - Malaise [Unknown]
  - Chromaturia [Recovering/Resolving]

NARRATIVE: CASE EVENT DATE: 2019
